FAERS Safety Report 5700163-1 (Version None)
Quarter: 2008Q2

REPORT INFORMATION
  Report Type: 
  Country: None (occurrence: None)
  Receive Date: 20080410
  Receipt Date: 20080403
  Transmission Date: 20081010
  Serious: Yes (Hospitalization)
  Sender: FDA-Public Use
  Company Number: PHHY2008IT04536

PATIENT
  Age: 60 Year
  Sex: Male

DRUGS (2)
  1. ZOMETA [Suspect]
     Indication: PROSTATE CANCER
     Dosage: 4 MG, QMO
     Route: 042
     Dates: start: 20041201, end: 20060301
  2. LEUPROLIDE ACETATE [Concomitant]

REACTIONS (5)
  - BLOOD TEST ABNORMAL [None]
  - COMPUTERISED TOMOGRAM ABNORMAL [None]
  - DENTAL OPERATION [None]
  - OSTEOMYELITIS [None]
  - X-RAY DENTAL [None]
